FAERS Safety Report 10157178 (Version 2)
Quarter: 2014Q2

REPORT INFORMATION
  Report Type: Spontaneous
  Country: US (occurrence: US)
  Receive Date: 20140507
  Receipt Date: 20140507
  Transmission Date: 20141212
  Serious: Yes (Death, Disabling)
  Sender: FDA-Public Use
  Company Number: US-CELGENEUS-163-POMAL-14010356

PATIENT
  Age: 58 Year
  Sex: Male

DRUGS (6)
  1. POMALYST [Suspect]
     Indication: PLASMA CELL MYELOMA
     Dosage: 4 MILLIGRAM
     Route: 048
     Dates: start: 201312, end: 20140122
  2. POMALYST [Suspect]
     Route: 048
     Dates: start: 20140222, end: 20140315
  3. RITUXAN [Concomitant]
     Indication: THROMBOCYTOPENIA
     Route: 041
     Dates: start: 20140220, end: 201403
  4. KYPROLIS [Concomitant]
     Indication: PLASMA CELL MYELOMA
     Dosage: 27 MILLIGRAM/SQ. METER
     Route: 041
     Dates: start: 20131102, end: 20140220
  5. VIDAZA [Concomitant]
     Indication: MYELODYSPLASTIC SYNDROME
     Route: 058
     Dates: start: 20130422, end: 20140305
  6. VELCADE [Concomitant]
     Indication: PLASMA CELL MYELOMA
     Dosage: 1.3 MILLIGRAM/SQ. METER
     Route: 058
     Dates: start: 20130909, end: 20131102

REACTIONS (3)
  - Death [Fatal]
  - Thrombocytopenia [Not Recovered/Not Resolved]
  - Pneumonia fungal [Unknown]
